FAERS Safety Report 19933608 (Version 2)
Quarter: 2021Q4

REPORT INFORMATION
  Report Type: Spontaneous
  Country: US (occurrence: US)
  Receive Date: 20211008
  Receipt Date: 20211014
  Transmission Date: 20220303
  Serious: Yes (Death)
  Sender: FDA-Public Use
  Company Number: US-VERO BIOTECH-2120343

PATIENT
  Age: 36 Year
  Sex: Female

DRUGS (1)
  1. GENOSYL [Suspect]
     Active Substance: NITRIC OXIDE
     Indication: COVID-19
     Route: 055
     Dates: start: 20210924

REACTIONS (1)
  - Acute respiratory distress syndrome [Fatal]

NARRATIVE: CASE EVENT DATE: 20210925
